FAERS Safety Report 13305626 (Version 1)
Quarter: 2017Q1

REPORT INFORMATION
  Report Type: Spontaneous
  Country: US (occurrence: US)
  Receive Date: 20170308
  Receipt Date: 20170308
  Transmission Date: 20170428
  Serious: Yes (Disabling)
  Sender: FDA-Public Use
  Company Number: None

PATIENT
  Age: 50 Year
  Sex: Female
  Weight: 54.43 kg

DRUGS (3)
  1. NATURE-THROID [Concomitant]
     Active Substance: THYROID, PORCINE
  2. CHLORAMHENICOL [Suspect]
     Active Substance: CHLORAMPHENICOL
     Dosage: ?          QUANTITY:G MAMA?S;?
     Route: 048
     Dates: start: 201109, end: 20131018
  3. INTERFASE ENZYME SUPPLEMENT [Suspect]
     Active Substance: DIETARY SUPPLEMENT
     Indication: GASTROINTESTINAL DISORDER

REACTIONS (6)
  - Product use issue [None]
  - Product contamination chemical [None]
  - Abdominal pain upper [None]
  - Vascular fragility [None]
  - Liver function test abnormal [None]
  - Fatigue [None]

NARRATIVE: CASE EVENT DATE: 20131018
